FAERS Safety Report 13237113 (Version 1)
Quarter: 2017Q1

REPORT INFORMATION
  Report Type: Spontaneous
  Country: IT (occurrence: IT)
  Receive Date: 20170215
  Receipt Date: 20170215
  Transmission Date: 20170428
  Serious: Yes (Other)
  Sender: FDA-Public Use
  Company Number: IT-MYLANLABS-2017M1008175

PATIENT

DRUGS (1)
  1. DROSPIRENONE/ETHINYLESTRADIOL [Suspect]
     Active Substance: DROSPIRENONE\ETHINYL ESTRADIOL
     Indication: CONTRACEPTION
     Dosage: ETHINYLESTRADIOL/DROSPIRENONE 0.020MG/3MG
     Route: 048

REACTIONS (2)
  - Cholestasis [Recovering/Resolving]
  - Portal fibrosis [None]
